FAERS Safety Report 4853445-X (Version None)
Quarter: 2005Q4

REPORT INFORMATION
  Report Type: 
  Country: None (occurrence: None)
  Receive Date: 20051130
  Receipt Date: 20051012
  Transmission Date: 20060501
  Serious: No
  Sender: FDA-Public Use
  Company Number: WAES 0510USA06773

PATIENT
  Age: 59 Year
  Sex: Male

DRUGS (3)
  1. ZETIA [Suspect]
     Indication: HYPERLIPIDAEMIA
     Dosage: 10 MG/DAILY/PO
     Route: 048
     Dates: start: 20051004
  2. ALTACE [Concomitant]
  3. METFORMIN [Concomitant]

REACTIONS (2)
  - DRY EYE [None]
  - VISION BLURRED [None]
